FAERS Safety Report 5608028-0 (Version None)
Quarter: 2008Q1

REPORT INFORMATION
  Report Type: 
  Country: None (occurrence: None)
  Receive Date: 20080130
  Receipt Date: 20080121
  Transmission Date: 20080703
  Serious: Yes (Other)
  Sender: FDA-Public Use
  Company Number: JP-SANOFI-SYNTHELABO-A01200800896

PATIENT
  Sex: Male

DRUGS (4)
  1. FLUOROURACIL [Concomitant]
     Dosage: UNK
     Route: 040
     Dates: start: 20071220, end: 20071220
  2. FLUOROURACIL [Concomitant]
     Dosage: UNK
     Route: 041
     Dates: start: 20071220, end: 20071221
  3. LEUCOVORIN CALCIUM [Concomitant]
     Dosage: UNK
     Route: 041
     Dates: start: 20071220, end: 20071220
  4. OXALIPLATIN [Suspect]
     Route: 041
     Dates: start: 20071220, end: 20071220

REACTIONS (1)
  - MYOCARDIAL INFARCTION [None]
